FAERS Safety Report 23523811 (Version 8)
Quarter: 2025Q4

REPORT INFORMATION
  Report Type: Spontaneous
  Country: CA (occurrence: CA)
  Receive Date: 20240214
  Receipt Date: 20251105
  Transmission Date: 20260118
  Serious: Yes (Other)
  Sender: PFIZER
  Company Number: CA-PFIZER INC-202400038051

PATIENT
  Age: 32 Year
  Sex: Female

DRUGS (1)
  1. ABRILADA [Suspect]
     Active Substance: ADALIMUMAB-AFZB
     Indication: Crohn^s disease
     Dosage: 1 DF, PREFILLED PEN - 160MG WEEK 0, 80MG WEEK 2 THEN 40MG Q 2 WEEKS
     Route: 058
     Dates: start: 20230629

REACTIONS (6)
  - Toothache [Not Recovered/Not Resolved]
  - Tooth abscess [Unknown]
  - Product dose omission issue [Unknown]
  - Product dose omission in error [Unknown]
  - Condition aggravated [Unknown]
  - Off label use [Unknown]

NARRATIVE: CASE EVENT DATE: 20240101
